FAERS Safety Report 12199599 (Version 1)
Quarter: 2016Q1

REPORT INFORMATION
  Report Type: Other
  Country: US (occurrence: US)
  Receive Date: 20160322
  Receipt Date: 20160322
  Transmission Date: 20160526
  Serious: No
  Sender: FDA-Public Use
  Company Number: US-MYLANLABS-2015M1031384

PATIENT
  Age: 10 Year
  Sex: Male
  Weight: 45.35 kg

DRUGS (2)
  1. DEXEDRINE [Concomitant]
     Active Substance: DEXTROAMPHETAMINE SULFATE
     Dosage: UNK
  2. GUANFACINE. [Suspect]
     Active Substance: GUANFACINE
     Dosage: 2 MG, QD
     Route: 048
     Dates: start: 20150807

REACTIONS (1)
  - Drug ineffective [Not Recovered/Not Resolved]

NARRATIVE: CASE EVENT DATE: 20150814
